FAERS Safety Report 7498777-4 (Version None)
Quarter: 2011Q2

REPORT INFORMATION
  Report Type: 
  Country: None (occurrence: None)
  Receive Date: 20110524
  Receipt Date: 20110518
  Transmission Date: 20111010
  Serious: No
  Sender: FDA-Public Use
  Company Number: US-PFIZER INC-2011105994

PATIENT
  Sex: Male

DRUGS (1)
  1. LYRICA [Suspect]
     Indication: PAIN IN EXTREMITY
     Dosage: 75 MG, 3X/DAY
     Route: 048
     Dates: start: 20110427

REACTIONS (6)
  - PAIN [None]
  - SOMNOLENCE [None]
  - THINKING ABNORMAL [None]
  - DIZZINESS [None]
  - EAR DISCOMFORT [None]
  - DIARRHOEA [None]
